FAERS Safety Report 5464509-4 (Version None)
Quarter: 2007Q3

REPORT INFORMATION
  Report Type: 
  Country: None (occurrence: None)
  Receive Date: 20070921
  Receipt Date: 20070913
  Transmission Date: 20080115
  Serious: Yes (Disabling)
  Sender: FDA-Public Use
  Company Number: US-GENENTECH-247685

PATIENT
  Age: 64 Year
  Sex: Female
  Weight: 55.329 kg

DRUGS (1)
  1. RITUXAN [Suspect]
     Indication: DERMATOMYOSITIS
     Dosage: UNK, X2

REACTIONS (2)
  - MYCOBACTERIUM AVIUM COMPLEX INFECTION [None]
  - PLEURAL EFFUSION [None]
